FAERS Safety Report 9260125 (Version 2)
Quarter: 2013Q2

REPORT INFORMATION
  Report Type: Spontaneous
  Country: US (occurrence: US)
  Receive Date: 20130429
  Receipt Date: 20130605
  Transmission Date: 20140414
  Serious: Yes (Hospitalization)
  Sender: FDA-Public Use
  Company Number: US-BAYER-2013-051841

PATIENT
  Age: 38 Year
  Sex: Female
  Weight: 58.96 kg

DRUGS (2)
  1. YASMIN [Suspect]
     Dosage: UNK
     Dates: start: 200508
  2. FLEXERIL [Concomitant]
     Dosage: 5 MG TABLET 1-2 Q HS PRN
     Dates: start: 20061106

REACTIONS (8)
  - Pulmonary embolism [Recovered/Resolved]
  - Pulmonary infarction [None]
  - Injury [Recovered/Resolved]
  - Pain [Recovered/Resolved]
  - General physical health deterioration [Recovered/Resolved]
  - Emotional distress [None]
  - Anxiety [None]
  - Pain [None]
